APPROVED DRUG PRODUCT: DOXAZOSIN MESYLATE
Active Ingredient: DOXAZOSIN MESYLATE
Strength: EQ 1MG BASE
Dosage Form/Route: TABLET;ORAL
Application: A075466 | Product #001
Applicant: GENPHARM INC
Approved: Oct 18, 2000 | RLD: No | RS: No | Type: DISCN